FAERS Safety Report 8041079-8 (Version None)
Quarter: 2012Q1

REPORT INFORMATION
  Report Type: 
  Country: None (occurrence: None)
  Receive Date: 20120112
  Receipt Date: 20120105
  Transmission Date: 20120608
  Serious: Yes (Death)
  Sender: FDA-Public Use
  Company Number: US-CELGENEUS-163-21880-12010408

PATIENT
  Sex: Female

DRUGS (10)
  1. CENTRUM SILVER [Concomitant]
     Route: 065
  2. CIPROFLOXACIN [Concomitant]
     Dosage: 100 MILLIGRAM
     Route: 065
  3. KETOROLAC TROMETHAMINE [Concomitant]
     Dosage: 10 MILLIGRAM
     Route: 065
  4. VITAMIN-MINERAL COMPOUND TAB [Concomitant]
     Route: 065
  5. VIGAMOX [Concomitant]
     Dosage: .5 PERCENT
     Route: 065
  6. POTASSIUM CHLORIDE [Concomitant]
     Dosage: 25 MILLIEQUIVALENTS
     Route: 065
  7. PREDNISONE SULFATE [Concomitant]
     Route: 047
  8. METOPROLOL SUCCINATE [Concomitant]
     Dosage: 25 MILLIGRAM
     Route: 065
  9. REVLIMID [Suspect]
     Indication: MYELODYSPLASTIC SYNDROME
     Dosage: 5 MILLIGRAM
     Route: 048
     Dates: start: 20111027, end: 20110101
  10. PRILOSEC [Concomitant]
     Dosage: 20 MILLIGRAM
     Route: 065

REACTIONS (1)
  - DEATH [None]
